FAERS Safety Report 5096219-X (Version None)
Quarter: 2006Q3

REPORT INFORMATION
  Report Type: 
  Country: None (occurrence: None)
  Receive Date: 20060831
  Receipt Date: 20060823
  Transmission Date: 20061208
  Serious: Yes (Hospitalization)
  Sender: FDA-Public Use
  Company Number: T200600937

PATIENT
  Age: 56 Year
  Sex: Female

DRUGS (6)
  1. HYDROCODONE BITARTRATE/APAP (HYDROCODONE BITARTRATE, ACETAMINOPHEN( TA [Suspect]
     Indication: PROCEDURAL PAIN
     Dosage: 5/500, 2 DOSES PRN, ORAL
     Route: 048
     Dates: start: 20060818, end: 20060818
  2. TRI-EST (TRIPLE ESTROGEN) [Concomitant]
  3. ESTRING [Concomitant]
  4. ZYRTEC /00884302/ (CETIRIZINE HYDROCHLORIDE) [Concomitant]
  5. MIACALCIN (CALCITONIN, SALMON) NASAL DROP (NASAL SPRAY TOO) [Concomitant]
  6. THYROID TAB [Concomitant]

REACTIONS (8)
  - DYSPHONIA [None]
  - HEADACHE [None]
  - HYPERTENSION [None]
  - MALAISE [None]
  - NAUSEA [None]
  - PHARYNGOLARYNGEAL PAIN [None]
  - POST PROCEDURAL COMPLICATION [None]
  - VOMITING [None]
